FAERS Safety Report 4369116-2 (Version None)
Quarter: 2004Q2

REPORT INFORMATION
  Report Type: 
  Country: None (occurrence: None)
  Receive Date: 20040528
  Receipt Date: 20040518
  Transmission Date: 20050107
  Serious: Yes (Other)
  Sender: FDA-Public Use
  Company Number: 2004214497GB

PATIENT
  Age: 52 Year
  Sex: Male

DRUGS (13)
  1. FRAGMIN [Suspect]
     Indication: DEEP VENOUS THROMBOSIS PROPHYLAXIS
     Dosage: 2500 U, QD, SUBCUTANEOUS
     Route: 058
  2. AMITRIPTYLINE HCL [Concomitant]
  3. SIMVASTATIN [Concomitant]
  4. LANSOPRAZOLE [Concomitant]
  5. PREDNISOLONE [Concomitant]
  6. INSULIN [Concomitant]
  7. GABAPENTIN [Concomitant]
  8. FERROUS SULFATE EXSICCATED (FERROUS SULFATE EXSICCATED) [Concomitant]
  9. DICLOFENAC [Concomitant]
  10. CEFUROXIME [Concomitant]
  11. METRONIDAZOLE [Concomitant]
  12. FLUCLOXACILLIN [Concomitant]
  13. BENZYLPENICILLIN (BENZYLPENICILLIN) [Concomitant]

REACTIONS (1)
  - HYPERKALAEMIA [None]
